FAERS Safety Report 16599827 (Version 12)
Quarter: 2021Q3

REPORT INFORMATION
  Report Type: Report from Study
  Country: FR (occurrence: FR)
  Receive Date: 20190720
  Receipt Date: 20210909
  Transmission Date: 20211014
  Serious: Yes (Hospitalization, Other)
  Sender: FDA-Public Use
  Company Number: PHHY2019FR153062

PATIENT
  Age: 9 Month
  Sex: Female
  Weight: 11.3 kg

DRUGS (4)
  1. ZOLGENSMA [Suspect]
     Active Substance: ONASEMNOGENE ABEPARVOVEC-XIOI
     Indication: SPINAL MUSCULAR ATROPHY
     Dosage: 7.7 X 10 (14), ONCE/SINGLE
     Route: 042
     Dates: start: 20190621
  2. INEXIUM [Concomitant]
     Active Substance: ESOMEPRAZOLE
     Indication: GASTROOESOPHAGEAL REFLUX DISEASE
     Dosage: 5 MG, QD
     Route: 048
     Dates: start: 201809
  3. INEXIUM [Concomitant]
     Active Substance: ESOMEPRAZOLE
     Dosage: 10 MG
     Route: 065
     Dates: start: 20190711
  4. INEXIUM [Concomitant]
     Active Substance: ESOMEPRAZOLE
     Dosage: 10 MG, QD
     Route: 048
     Dates: start: 201909

REACTIONS (15)
  - Pyrexia [Recovered/Resolved]
  - Bacterial infection [Recovered/Resolved]
  - Pulmonary function test abnormal [Unknown]
  - Platelet count abnormal [Recovered/Resolved]
  - Troponin T increased [Unknown]
  - Neutropenia [Unknown]
  - Malnutrition [Not Recovered/Not Resolved]
  - Troponin increased [Not Recovered/Not Resolved]
  - Troponin I increased [Unknown]
  - Haemangioma [Unknown]
  - Aspartate aminotransferase increased [Recovering/Resolving]
  - Blood creatine phosphokinase increased [Unknown]
  - Gastritis [Unknown]
  - Poor feeding infant [Not Recovered/Not Resolved]
  - White blood cell count abnormal [Recovered/Resolved]

NARRATIVE: CASE EVENT DATE: 20190623
